FAERS Safety Report 25170661 (Version 2)
Quarter: 2025Q2

REPORT INFORMATION
  Report Type: Spontaneous
  Country: DE (occurrence: DE)
  Receive Date: 20250408
  Receipt Date: 20250417
  Transmission Date: 20250717
  Serious: Yes (Hospitalization)
  Sender: BIOGEN
  Company Number: DE-BIOGEN-2025BI01306436

PATIENT
  Age: 33 Year
  Sex: Female

DRUGS (2)
  1. TYSABRI [Suspect]
     Active Substance: NATALIZUMAB
     Indication: Multiple sclerosis
     Dosage: 2 X 150
     Route: 050
     Dates: start: 202309
  2. TYSABRI [Suspect]
     Active Substance: NATALIZUMAB
     Dosage: (2X150 MG)
     Route: 050
     Dates: start: 202309

REACTIONS (4)
  - Breast cancer female [Recovered/Resolved with Sequelae]
  - Prescribed underdose [Recovered/Resolved]
  - Nasopharyngitis [Not Recovered/Not Resolved]
  - Fatigue [Not Recovered/Not Resolved]

NARRATIVE: CASE EVENT DATE: 20230901
